FAERS Safety Report 8209998-7 (Version None)
Quarter: 2012Q1

REPORT INFORMATION
  Report Type: 
  Country: None (occurrence: None)
  Receive Date: 20120314
  Receipt Date: 20120109
  Transmission Date: 20120608
  Serious: No
  Sender: FDA-Public Use
  Company Number: US-ASTRAZENECA-2011SE76716

PATIENT
  Age: 48 Year
  Sex: Female
  Weight: 95.3 kg

DRUGS (7)
  1. PREVACID [Concomitant]
     Indication: GASTROOESOPHAGEAL REFLUX DISEASE
  2. ZESTRIL [Concomitant]
  3. PRILOSEC [Suspect]
     Route: 048
  4. TOPROL-XL [Suspect]
     Indication: HYPERTENSION
     Route: 048
  5. EFFEXOR [Concomitant]
  6. XANAX [Concomitant]
  7. AMBIEN [Concomitant]

REACTIONS (5)
  - INFLUENZA [None]
  - BRONCHITIS [None]
  - COUGH [None]
  - OFF LABEL USE [None]
  - NASOPHARYNGITIS [None]
